FAERS Safety Report 10664631 (Version 1)
Quarter: 2014Q4

REPORT INFORMATION
  Report Type: Spontaneous
  Country: PT (occurrence: None)
  Receive Date: 20141217
  Receipt Date: 20141217
  Transmission Date: 20150529
  Serious: Yes (Other)
  Sender: FDA-Public Use
  Company Number: 2663216

PATIENT
  Age: 8 Year
  Sex: Male

DRUGS (3)
  1. ROPIVACAINE HYDROCHLORIDE. [Suspect]
     Active Substance: ROPIVACAINE HYDROCHLORIDE
     Indication: NERVE BLOCK
     Route: 008
  2. SEVOFLURANE. [Concomitant]
     Active Substance: SEVOFLURANE
  3. PARACETAMOL [Concomitant]
     Active Substance: ACETAMINOPHEN

REACTIONS (6)
  - Bronchospasm [None]
  - Hypotension [None]
  - Tachycardia [None]
  - Anaphylactic reaction [None]
  - Generalised erythema [None]
  - Face oedema [None]
